FAERS Safety Report 21483329 (Version 5)
Quarter: 2024Q2

REPORT INFORMATION
  Report Type: Report from Study
  Country: CA (occurrence: CA)
  Receive Date: 20221020
  Receipt Date: 20240621
  Transmission Date: 20240716
  Serious: Yes (Hospitalization, Other)
  Sender: FDA-Public Use
  Company Number: CA-002147023-PHHY2013CA006814

PATIENT
  Age: 33 Year
  Sex: Female

DRUGS (3)
  1. XOLAIR [Suspect]
     Active Substance: OMALIZUMAB
     Indication: Asthma
     Route: 058
     Dates: start: 20120510
  2. XOLAIR [Suspect]
     Active Substance: OMALIZUMAB
     Route: 058
  3. APROTININ [Concomitant]
     Active Substance: APROTININ
     Indication: Product used for unknown indication

REACTIONS (12)
  - Asthma [Unknown]
  - Respiratory distress [Unknown]
  - Anaphylactic reaction [Unknown]
  - Sense of oppression [Unknown]
  - Arthropod sting [Unknown]
  - Gait disturbance [Unknown]
  - Wheezing [Unknown]
  - Cough [Not Recovered/Not Resolved]
  - Dyspnoea [Unknown]
  - Urticaria [Unknown]
  - Chronic spontaneous urticaria [Unknown]
  - Wrong technique in product usage process [Unknown]

NARRATIVE: CASE EVENT DATE: 20130113
